FAERS Safety Report 9638421 (Version 1)
Quarter: 2013Q4

REPORT INFORMATION
  Report Type: Spontaneous
  Country: US (occurrence: US)
  Receive Date: 20131022
  Receipt Date: 20131022
  Transmission Date: 20140711
  Serious: No
  Sender: FDA-Public Use
  Company Number: US-009507513-1310USA010001

PATIENT
  Sex: 0

DRUGS (1)
  1. A + D ORIGINAL OINTMENT [Suspect]
     Indication: DRY SKIN
     Dosage: UNK, UNKNOWN
     Route: 061

REACTIONS (1)
  - Drug administered at inappropriate site [Unknown]
